FAERS Safety Report 5946427-8 (Version None)
Quarter: 2008Q4

REPORT INFORMATION
  Report Type: 
  Country: None (occurrence: None)
  Receive Date: 20081110
  Receipt Date: 20081110
  Transmission Date: 20090506
  Serious: Yes (Other)
  Sender: FDA-Public Use
  Company Number: A0755577A

PATIENT
  Age: 35 Year
  Sex: Female

DRUGS (12)
  1. NICODERM CQ [Suspect]
     Indication: SMOKING CESSATION THERAPY
     Route: 062
  2. REMERON [Concomitant]
     Route: 048
  3. KLOR-CON [Concomitant]
     Route: 048
  4. COPAXONE [Concomitant]
  5. SOMA [Concomitant]
     Route: 048
  6. VALIUM [Concomitant]
     Route: 048
  7. FOLIC ACID [Concomitant]
     Route: 048
  8. LASIX [Concomitant]
     Route: 048
  9. CELEBREX [Concomitant]
     Route: 048
  10. PREVACID [Concomitant]
     Route: 048
  11. PLETAL [Concomitant]
     Route: 048
  12. CYMBALTA [Concomitant]
     Route: 048

REACTIONS (1)
  - EPILEPSY [None]
